FAERS Safety Report 5914283-X (Version None)
Quarter: 2008Q4

REPORT INFORMATION
  Report Type: 
  Country: None (occurrence: None)
  Receive Date: 20081009
  Receipt Date: 20081006
  Transmission Date: 20090506
  Serious: No
  Sender: FDA-Public Use
  Company Number: US-B.I. PHARMACEUTICALS,INC./RIDGEFIELD-2008-BP-15445BP

PATIENT
  Age: 56 Year
  Sex: Female

DRUGS (4)
  1. SPIRIVA [Suspect]
     Indication: ASTHMA
     Dosage: 18MCG
     Route: 055
     Dates: start: 20080910
  2. SPIRIVA [Suspect]
     Indication: BRONCHITIS
  3. PULMICORT FLEXHALER [Concomitant]
     Indication: ASTHMA
     Dosage: 360MCG
     Route: 055
  4. SINGULAIR [Concomitant]
     Indication: ASTHMA
     Route: 048

REACTIONS (5)
  - EYE PRURITUS [None]
  - EYE SWELLING [None]
  - EYELID OEDEMA [None]
  - FEELING ABNORMAL [None]
  - WEIGHT INCREASED [None]
